FAERS Safety Report 22081024 (Version 1)
Quarter: 2023Q1

REPORT INFORMATION
  Report Type: Report from Study
  Country: DE (occurrence: DE)
  Receive Date: 20230309
  Receipt Date: 20230309
  Transmission Date: 20230417
  Serious: Yes (Life-Threatening)
  Sender: FDA-Public Use
  Company Number: DE-GE HEALTHCARE-2023CSU001574

PATIENT
  Sex: Female

DRUGS (4)
  1. GADOLINIUM [Suspect]
     Active Substance: GADOLINIUM
     Indication: Angiocardiogram
     Dosage: UNK ML, SINGLE
     Route: 013
  2. GADOLINIUM [Suspect]
     Active Substance: GADOLINIUM
     Indication: Angina unstable
  3. SODIUM CHLORIDE [Concomitant]
     Active Substance: SODIUM CHLORIDE
     Indication: Angiocardiogram
     Dosage: UNK
  4. SODIUM CHLORIDE [Concomitant]
     Active Substance: SODIUM CHLORIDE
     Indication: Angina unstable

REACTIONS (2)
  - Ventricular fibrillation [Recovered/Resolved]
  - Off label use [Recovered/Resolved]
